FAERS Safety Report 25232134 (Version 8)
Quarter: 2025Q4

REPORT INFORMATION
  Report Type: Report from Study
  Country: CA (occurrence: CA)
  Receive Date: 20250423
  Receipt Date: 20251021
  Transmission Date: 20260118
  Serious: Yes (Hospitalization, Other)
  Sender: PFIZER
  Company Number: CA-BRISTOL-MYERS SQUIBB COMPANY-2024-171435

PATIENT
  Age: 82 Year
  Sex: Female

DRUGS (34)
  1. ELIQUIS [Suspect]
     Active Substance: APIXABAN
     Dosage: 1 DF, 2X/DAY
     Route: 065
  2. CALCIUM CHLORIDE [Suspect]
     Active Substance: CALCIUM CHLORIDE
     Dosage: UNK
     Route: 065
  3. PERINDOPRIL [Suspect]
     Active Substance: PERINDOPRIL
     Route: 065
  4. SANDOSTATIN [Suspect]
     Active Substance: OCTREOTIDE ACETATE
     Indication: Pituitary tumour benign
     Dosage: 30 MG, MONTHLY
     Route: 030
  5. SANDOSTATIN [Suspect]
     Active Substance: OCTREOTIDE ACETATE
     Dosage: 30 MG, MONTHLY
     Route: 030
  6. SANDOSTATIN [Suspect]
     Active Substance: OCTREOTIDE ACETATE
     Dosage: 30 MG, MONTHLY
     Route: 030
  7. SANDOSTATIN [Suspect]
     Active Substance: OCTREOTIDE ACETATE
     Dosage: 20 MG, EVERY 4 WEEKS
     Route: 030
  8. SANDOSTATIN [Suspect]
     Active Substance: OCTREOTIDE ACETATE
     Dosage: 50 UG, 3X/DAY
     Route: 058
     Dates: start: 20230814
  9. SANDOSTATIN [Suspect]
     Active Substance: OCTREOTIDE ACETATE
     Dosage: 50 UG, 2X/DAY
     Route: 058
  10. SANDOSTATIN [Suspect]
     Active Substance: OCTREOTIDE ACETATE
     Dosage: 50 UG, 3X/DAY
     Route: 058
  11. SANDOSTATIN [Suspect]
     Active Substance: OCTREOTIDE ACETATE
     Dosage: 20 MG
     Route: 030
  12. SANDOSTATIN [Suspect]
     Active Substance: OCTREOTIDE ACETATE
     Dosage: 20 MG
     Route: 030
  13. SANDOSTATIN [Suspect]
     Active Substance: OCTREOTIDE ACETATE
     Dosage: 20 MG
     Route: 030
  14. SANDOSTATIN [Suspect]
     Active Substance: OCTREOTIDE ACETATE
     Dosage: 40 MG, MONTHLY
     Route: 030
  15. ACEBUTOLOL HYDROCHLORIDE [Concomitant]
     Active Substance: ACEBUTOLOL HYDROCHLORIDE
     Dosage: 100 MG
     Route: 065
  16. ACEBUTOLOL HYDROCHLORIDE [Concomitant]
     Active Substance: ACEBUTOLOL HYDROCHLORIDE
     Dosage: 200 MG
     Route: 065
  17. ASPIRIN [Concomitant]
     Active Substance: ASPIRIN
     Dosage: DISCONTINUED
     Route: 065
  18. AVAPRO [Concomitant]
     Active Substance: IRBESARTAN
     Indication: Heart rate abnormal
     Dosage: 150 MG, 1X/DAY
     Route: 065
  19. BETAHISTINE [Concomitant]
     Active Substance: BETAHISTINE
     Indication: Dizziness
     Dosage: 1 DF, 3X/DAY
     Route: 065
  20. CALCITRIOL [Concomitant]
     Active Substance: CALCITRIOL
     Dosage: 3 DF, WEEKLY
     Route: 065
  21. DOPAMINE [Concomitant]
     Active Substance: DOPAMINE HYDROCHLORIDE
     Dosage: UNK
     Route: 065
  22. GLICLAZIDE [Concomitant]
     Active Substance: GLICLAZIDE
     Indication: Diabetes mellitus
     Dosage: 30 MG, 1X/DAY
     Route: 065
  23. INSULIN NOS [Concomitant]
     Active Substance: INSULIN NOS
     Indication: Diabetes mellitus
     Dosage: GLOBULES ORAL
     Route: 065
  24. JARDIANCE [Concomitant]
     Active Substance: EMPAGLIFLOZIN
     Indication: Diabetes mellitus
     Dosage: 10 MG, 1X/DAY
     Route: 065
  25. JARDIANCE [Concomitant]
     Active Substance: EMPAGLIFLOZIN
     Indication: Diabetes mellitus
     Dosage: 10 MG, 1X/DAY
     Route: 065
  26. LIPITOR [Concomitant]
     Active Substance: ATORVASTATIN CALCIUM
     Route: 065
  27. METFORMIN HYDROCHLORIDE [Concomitant]
     Active Substance: METFORMIN HYDROCHLORIDE
     Dosage: DISCONTINUED
     Route: 065
  28. REPAGLINIDE [Concomitant]
     Active Substance: REPAGLINIDE
     Indication: Hyperglycaemia
     Dosage: 2 MG, 3X/DAY
     Route: 065
  29. REPAGLINIDE [Concomitant]
     Active Substance: REPAGLINIDE
     Dosage: 3 MG, 3X/DAY
     Route: 065
  30. REPAGLINIDE [Concomitant]
     Active Substance: REPAGLINIDE
     Dosage: 3 MG, 3X/DAY
     Route: 065
  31. METHIMAZOLE [Concomitant]
     Active Substance: METHIMAZOLE
     Dosage: DISCONTINUED
     Route: 065
  32. METHIMAZOLE [Concomitant]
     Active Substance: METHIMAZOLE
     Dosage: UNK
     Route: 065
  33. LINAGLIPTIN [Concomitant]
     Active Substance: LINAGLIPTIN
     Indication: Hyperglycaemia
     Dosage: 5 MG, 1X/DAY
     Route: 065
  34. TAPAZOLE [Concomitant]
     Active Substance: METHIMAZOLE
     Dosage: DISCONTINUED
     Route: 065

REACTIONS (52)
  - Ecchymosis [Not Recovered/Not Resolved]
  - Epistaxis [Not Recovered/Not Resolved]
  - Hyperkalaemia [Not Recovered/Not Resolved]
  - Labyrinthitis [Not Recovered/Not Resolved]
  - Pulmonary embolism [Not Recovered/Not Resolved]
  - Renal failure [Not Recovered/Not Resolved]
  - Thrombosis [Not Recovered/Not Resolved]
  - Anaemia [Not Recovered/Not Resolved]
  - Arthralgia [Not Recovered/Not Resolved]
  - Asthenia [Not Recovered/Not Resolved]
  - Blood iron decreased [Not Recovered/Not Resolved]
  - Blood pressure decreased [Not Recovered/Not Resolved]
  - Blood pressure diastolic decreased [Not Recovered/Not Resolved]
  - Blood pressure increased [Not Recovered/Not Resolved]
  - Blood pressure systolic increased [Not Recovered/Not Resolved]
  - Body temperature decreased [Not Recovered/Not Resolved]
  - Bradycardia [Not Recovered/Not Resolved]
  - Diarrhoea [Not Recovered/Not Resolved]
  - Dizziness [Not Recovered/Not Resolved]
  - Dyskinesia [Not Recovered/Not Resolved]
  - Dyspnoea [Not Recovered/Not Resolved]
  - Erythema [Not Recovered/Not Resolved]
  - Fall [Not Recovered/Not Resolved]
  - Fatigue [Not Recovered/Not Resolved]
  - Feeling hot [Not Recovered/Not Resolved]
  - Foot deformity [Not Recovered/Not Resolved]
  - Gait disturbance [Not Recovered/Not Resolved]
  - General physical health deterioration [Not Recovered/Not Resolved]
  - Gout [Not Recovered/Not Resolved]
  - Herpes zoster [Not Recovered/Not Resolved]
  - Influenza [Not Recovered/Not Resolved]
  - Insomnia [Not Recovered/Not Resolved]
  - Limb injury [Not Recovered/Not Resolved]
  - Malaise [Not Recovered/Not Resolved]
  - Myalgia [Not Recovered/Not Resolved]
  - Nasopharyngitis [Not Recovered/Not Resolved]
  - Ocular hyperaemia [Not Recovered/Not Resolved]
  - Oedema peripheral [Not Recovered/Not Resolved]
  - Osteoarthritis [Not Recovered/Not Resolved]
  - Pain [Not Recovered/Not Resolved]
  - Productive cough [Not Recovered/Not Resolved]
  - Pyrexia [Not Recovered/Not Resolved]
  - Sciatica [Not Recovered/Not Resolved]
  - Sinusitis [Not Recovered/Not Resolved]
  - Skin sensitisation [Not Recovered/Not Resolved]
  - Sputum discoloured [Not Recovered/Not Resolved]
  - Stress [Not Recovered/Not Resolved]
  - Trigeminal neuralgia [Not Recovered/Not Resolved]
  - Visual impairment [Not Recovered/Not Resolved]
  - Injection site erythema [Not Recovered/Not Resolved]
  - Needle issue [Not Recovered/Not Resolved]
  - Off label use [Unknown]
